FAERS Safety Report 14561788 (Version 2)
Quarter: 2018Q1

REPORT INFORMATION
  Report Type: Spontaneous
  Country: US (occurrence: US)
  Receive Date: 20180222
  Receipt Date: 20180228
  Transmission Date: 20180509
  Serious: No
  Sender: FDA-Public Use
  Company Number: US-PFIZER INC-2018073757

PATIENT
  Age: 81 Year
  Sex: Female
  Weight: 57.61 kg

DRUGS (3)
  1. PREDNISONE. [Concomitant]
     Active Substance: PREDNISONE
     Indication: POLYMYALGIA RHEUMATICA
     Dosage: 5 MG, UNK
  2. LYRICA [Suspect]
     Active Substance: PREGABALIN
     Dosage: 25 MG, UNK
     Route: 048
  3. LYRICA [Suspect]
     Active Substance: PREGABALIN
     Indication: HYPOAESTHESIA
     Dosage: UNK (TAKE IT AT NIGHT/TAKE IT AT 2PM/ TAKE IT AT 8AM)

REACTIONS (3)
  - Pruritus [Not Recovered/Not Resolved]
  - Facial pain [Unknown]
  - Somnolence [Recovering/Resolving]
